FAERS Safety Report 9069760 (Version 1)
Quarter: 2013Q1

REPORT INFORMATION
  Report Type: Report from Study
  Country: US (occurrence: US)
  Receive Date: 20130215
  Receipt Date: 20130215
  Transmission Date: 20140127
  Serious: Yes (Hospitalization)
  Sender: FDA-Public Use
  Company Number: US-BIOGENIDEC-2012BI030276

PATIENT
  Age: 28 Year
  Sex: Female

DRUGS (14)
  1. TYSABRI [Suspect]
     Indication: MULTIPLE SCLEROSIS
     Route: 042
     Dates: start: 20091102
  2. ASPIRIN [Concomitant]
     Indication: PROPHYLAXIS
     Route: 048
  3. BACLOFEN [Concomitant]
     Indication: MUSCLE SPASTICITY
     Route: 037
  4. CALCIUM WITH VITAMIN D [Concomitant]
     Indication: SUPPLEMENTATION THERAPY
     Route: 048
  5. DULCOLAX [Concomitant]
     Indication: GASTROINTESTINAL DISORDER
     Route: 054
  6. ENSURE HIGH PROTEIN [Concomitant]
     Indication: SUPPLEMENTATION THERAPY
     Route: 048
  7. LIDODERM [Concomitant]
     Indication: PAIN
  8. MULTIVITAMIN [Concomitant]
     Indication: SUPPLEMENTATION THERAPY
     Route: 048
  9. NEURONTIN [Concomitant]
     Indication: PAIN
     Route: 048
  10. SENNA [Concomitant]
     Indication: GASTROINTESTINAL DISORDER
  11. TAMSULOSIN ER [Concomitant]
     Indication: BLADDER SPASM
  12. VALTREX [Concomitant]
     Indication: ANTIVIRAL PROPHYLAXIS
     Route: 048
  13. VITAMIN C [Concomitant]
     Indication: SUPPLEMENTATION THERAPY
  14. VITAMIN D3 [Concomitant]
     Indication: SUPPLEMENTATION THERAPY
     Route: 048

REACTIONS (1)
  - Pyelonephritis [Recovered/Resolved]
